FAERS Safety Report 6189513-2 (Version None)
Quarter: 2009Q2

REPORT INFORMATION
  Report Type: 
  Country: None (occurrence: None)
  Receive Date: 20090512
  Receipt Date: 20090512
  Transmission Date: 20091009
  Serious: Yes (Hospitalization)
  Sender: FDA-Public Use
  Company Number: None

PATIENT
  Sex: Female
  Weight: 40.8237 kg

DRUGS (2)
  1. NITROFURANTOIN (MONOHYDRATE/MACROCRYSTALS) [Suspect]
     Indication: ESCHERICHIA INFECTION
     Dosage: 100MG BID PO
     Route: 048
     Dates: start: 20090314, end: 20090320
  2. NITROFURANTOIN (MONOHYDRATE/MACROCRYSTALS) [Suspect]
     Indication: URINARY TRACT INFECTION
     Dosage: 100MG BID PO
     Route: 048
     Dates: start: 20090314, end: 20090320

REACTIONS (8)
  - BLOOD GLUCOSE INCREASED [None]
  - DIPLOPIA [None]
  - HEADACHE [None]
  - HEPATIC ENZYME INCREASED [None]
  - HYPOAESTHESIA [None]
  - NEUROLOGICAL SYMPTOM [None]
  - NO THERAPEUTIC RESPONSE [None]
  - TYPE 1 DIABETES MELLITUS [None]
